FAERS Safety Report 9307806 (Version 1)
Quarter: 2013Q2

REPORT INFORMATION
  Report Type: Spontaneous
  Country: US (occurrence: US)
  Receive Date: 20130524
  Receipt Date: 20130524
  Transmission Date: 20140414
  Serious: Yes (Hospitalization)
  Sender: FDA-Public Use
  Company Number: US-PFIZER INC-2013156655

PATIENT
  Age: 70 Year
  Sex: Male
  Weight: 78.91 kg

DRUGS (1)
  1. VFEND [Suspect]
     Indication: POSTOPERATIVE CARE
     Dosage: 200 MG, 2X/DAY
     Route: 048
     Dates: start: 201301

REACTIONS (2)
  - Thrombosis [Unknown]
  - Pulmonary thrombosis [Unknown]
